FAERS Safety Report 13820621 (Version 2)
Quarter: 2017Q3

REPORT INFORMATION
  Report Type: Spontaneous
  Country: US (occurrence: US)
  Receive Date: 20170801
  Receipt Date: 20170802
  Transmission Date: 20171127
  Serious: Yes (Hospitalization, Other)
  Sender: FDA-Public Use
  Company Number: US-PFIZER INC-2017327932

PATIENT
  Age: 69 Year
  Sex: Male
  Weight: 79 kg

DRUGS (1)
  1. XALKORI [Suspect]
     Active Substance: CRIZOTINIB
     Indication: LUNG NEOPLASM MALIGNANT
     Dosage: 250 MG, 2X/DAY
     Dates: start: 20170707, end: 20170717

REACTIONS (5)
  - Neoplasm progression [Unknown]
  - Delirium [Recovered/Resolved]
  - Memory impairment [Recovered/Resolved]
  - Pneumonia [Unknown]
  - Delusional perception [Unknown]

NARRATIVE: CASE EVENT DATE: 201707
